FAERS Safety Report 13871968 (Version 1)
Quarter: 2017Q3

REPORT INFORMATION
  Report Type: Report from Study
  Country: US (occurrence: US)
  Receive Date: 20170816
  Receipt Date: 20170816
  Transmission Date: 20171127
  Serious: Yes (Other)
  Sender: FDA-Public Use
  Company Number: US-AMGEN-USASL2017120774

PATIENT
  Age: 56 Year
  Sex: Female

DRUGS (1)
  1. REPATHA [Suspect]
     Active Substance: EVOLOCUMAB
     Indication: BLOOD CHOLESTEROL INCREASED
     Dosage: 140 MG, Q2WK
     Route: 065
     Dates: start: 20170803

REACTIONS (6)
  - Pharyngeal oedema [Unknown]
  - Dry eye [Unknown]
  - Eye discharge [Unknown]
  - Swollen tongue [Unknown]
  - Dyspnoea [Recovered/Resolved]
  - Eye pruritus [Unknown]
